FAERS Safety Report 10375340 (Version 1)
Quarter: 2014Q1

REPORT INFORMATION
  Report Type: Spontaneous
  Country: US (occurrence: None)
  Receive Date: 20140306
  Receipt Date: 20140306
  Transmission Date: 20141002
  Serious: Yes (Hospitalization)
  Sender: FDA-Public Use
  Company Number: 163-21880-13010902

PATIENT
  Age: 68 Year
  Sex: Male
  Weight: 102.6 kg

DRUGS (3)
  1. REVLIMID [Suspect]
     Indication: PLASMA CELL MYELOMA
     Route: 048
     Dates: start: 201110
  2. LISINOPRIL (LISINOPRIL) (UNKNOWN) (LISINOPRIL) [Concomitant]
  3. TRANSFUSION (UNKNOWN) [Concomitant]

REACTIONS (1)
  - Renal failure acute [None]
